FAERS Safety Report 24349632 (Version 2)
Quarter: 2024Q3

REPORT INFORMATION
  Report Type: Spontaneous
  Country: US (occurrence: US)
  Receive Date: 20240923
  Receipt Date: 20240930
  Transmission Date: 20241017
  Serious: No
  Sender: BIOVITRUM
  Company Number: US-BIOVITRUM-2024-US-012298

PATIENT
  Age: 63 Year
  Sex: Female

DRUGS (1)
  1. VONJO [Suspect]
     Active Substance: PACRITINIB
     Indication: Myelofibrosis
     Dosage: TWICE DAILY
     Route: 048
     Dates: start: 20240828, end: 20240913

REACTIONS (2)
  - Off label use [Recovered/Resolved]
  - Platelet disorder [Unknown]

NARRATIVE: CASE EVENT DATE: 20240828
